FAERS Safety Report 25235090 (Version 2)
Quarter: 2025Q4

REPORT INFORMATION
  Report Type: Report from Study
  Country: US (occurrence: US)
  Receive Date: 20250424
  Receipt Date: 20251111
  Transmission Date: 20260118
  Serious: Yes (Hospitalization, Other)
  Sender: ABBVIE
  Company Number: US-ABBVIE-6238397

PATIENT
  Age: 70 Year
  Sex: Female

DRUGS (1)
  1. SKYRIZI [Suspect]
     Active Substance: RISANKIZUMAB-RZAA
     Indication: Crohn^s disease
     Route: 042
     Dates: start: 20241104

REACTIONS (4)
  - Pancreatic failure [Recovering/Resolving]
  - Intestinal obstruction [Not Recovered/Not Resolved]
  - Scar [Unknown]
  - Malabsorption [Unknown]

NARRATIVE: CASE EVENT DATE: 20250415
